FAERS Safety Report 22634944 (Version 1)
Quarter: 2023Q2

REPORT INFORMATION
  Report Type: Spontaneous
  Country: US (occurrence: None)
  Receive Date: 20230622
  Receipt Date: 20230622
  Transmission Date: 20230722
  Serious: Yes (Other)
  Sender: FDA-Public Use
  Company Number: None

PATIENT
  Age: 47 Year
  Sex: Female
  Weight: 99.9 kg

DRUGS (1)
  1. TACROLIMUS [Suspect]
     Active Substance: TACROLIMUS
     Indication: Dermatitis allergic
     Dosage: OTHER QUANTITY : 1 30;?FREQUENCY : TWICE A DAY;?
     Route: 061
     Dates: start: 20230620, end: 20230621

REACTIONS (4)
  - Application site pruritus [None]
  - Application site swelling [None]
  - Application site burn [None]
  - Application site pain [None]

NARRATIVE: CASE EVENT DATE: 20230620
